FAERS Safety Report 21650571 (Version 4)
Quarter: 2023Q2

REPORT INFORMATION
  Report Type: Spontaneous
  Country: US (occurrence: US)
  Receive Date: 20221128
  Receipt Date: 20230505
  Transmission Date: 20230722
  Serious: Yes (Other)
  Sender: FDA-Public Use
  Company Number: US-PFIZER INC-202201332446

PATIENT
  Age: 62 Year
  Sex: Female

DRUGS (4)
  1. IBRANCE [Suspect]
     Active Substance: PALBOCICLIB
     Dosage: 125 MG, CYCLIC (ONE TABLET DAILY FOR 21 DAYS ON AND 7 DAYS OFF OF A 28 DAY CYCLE)
     Route: 048
     Dates: start: 20221108
  2. ALLERGY [CHLORPHENAMINE MALEATE] [Concomitant]
     Dosage: UNK
  3. ANASTROZOLE [Concomitant]
     Active Substance: ANASTROZOLE
     Dosage: UNK
  4. ZOLOFT [Concomitant]
     Active Substance: SERTRALINE HYDROCHLORIDE
     Dosage: UNK

REACTIONS (10)
  - Viral infection [Recovering/Resolving]
  - Dry skin [Not Recovered/Not Resolved]
  - Scratch [Not Recovered/Not Resolved]
  - Herpes zoster [Unknown]
  - Aphonia [Unknown]
  - Somnolence [Unknown]
  - Feeling abnormal [Unknown]
  - Stress [Unknown]
  - Herpes zoster [Recovering/Resolving]
  - Ear infection [Recovering/Resolving]

NARRATIVE: CASE EVENT DATE: 20230301
